FAERS Safety Report 9009749 (Version 1)
Quarter: 2013Q1

REPORT INFORMATION
  Report Type: Spontaneous
  Country: CA (occurrence: CA)
  Receive Date: 20130110
  Receipt Date: 20130110
  Transmission Date: 20140127
  Serious: Yes (Other)
  Sender: FDA-Public Use
  Company Number: CA-PFIZER INC-2012277414

PATIENT
  Age: 49 Year
  Sex: Female

DRUGS (2)
  1. METRONIDAZOLE [Suspect]
     Dosage: UNK
     Route: 048
  2. AMOXICILLIN [Suspect]
     Dosage: UNK
     Route: 048

REACTIONS (2)
  - Hypertension [Unknown]
  - Tinnitus [Unknown]
